APPROVED DRUG PRODUCT: PENTOLAIR
Active Ingredient: CYCLOPENTOLATE HYDROCHLORIDE
Strength: 0.5%
Dosage Form/Route: SOLUTION/DROPS;OPHTHALMIC
Application: A088643 | Product #001
Applicant: PHARMAFAIR INC
Approved: Feb 9, 1987 | RLD: No | RS: No | Type: DISCN